FAERS Safety Report 4396804-4 (Version None)
Quarter: 2004Q3

REPORT INFORMATION
  Report Type: 
  Country: None (occurrence: None)
  Receive Date: 20040709
  Receipt Date: 20040628
  Transmission Date: 20050211
  Serious: Yes (Hospitalization)
  Sender: FDA-Public Use
  Company Number: 2004221634SE

PATIENT
  Age: 57 Year
  Sex: Female

DRUGS (8)
  1. PREDNISOLONE [Suspect]
     Indication: RHEUMATOID ARTHRITIS
     Dosage: ORAL
     Route: 048
  2. MABTHERA (RITUXIMAB) [Suspect]
     Dosage: 1 G, QD, IV
     Route: 042
     Dates: start: 20040127, end: 20040209
  3. ZOLOFT [Concomitant]
  4. ALVEDON [Concomitant]
  5. CONFORTID [Concomitant]
  6. KLIOGEST (NORETHISTERONE ACETATE) [Concomitant]
  7. NAPROXEN ^ASTRA^ [Concomitant]
  8. LOSEC [Concomitant]

REACTIONS (5)
  - ABSCESS INTESTINAL [None]
  - DIVERTICULAR PERFORATION [None]
  - POST PROCEDURAL HAEMORRHAGE [None]
  - POST PROCEDURAL PAIN [None]
  - VAGINITIS BACTERIAL [None]
